FAERS Safety Report 15167257 (Version 1)
Quarter: 2018Q3

REPORT INFORMATION
  Report Type: Spontaneous
  Country: US (occurrence: US)
  Receive Date: 20180621
  Receipt Date: 20180621
  Transmission Date: 20181010
  Serious: Yes (Disabling)
  Sender: FDA-Public Use
  Company Number: None

PATIENT
  Age: 47 Year
  Sex: Female
  Weight: 67.5 kg

DRUGS (9)
  1. MAGNESIUM [Concomitant]
     Active Substance: MAGNESIUM
  2. VITAMIN D3 [Concomitant]
     Active Substance: CHOLECALCIFEROL
  3. JOINT SUPPLEMENT [Concomitant]
  4. FISH OIL [Concomitant]
     Active Substance: FISH OIL
  5. CERVICAL TRACTION DEVICE [Concomitant]
  6. MULTIVITAMIN [Concomitant]
     Active Substance: VITAMINS
  7. UBIQUINOL [Concomitant]
     Active Substance: UBIQUINOL
  8. LEVOFLOXACIN. [Suspect]
     Active Substance: LEVOFLOXACIN
     Indication: PNEUMONIA
     Dosage: ?          QUANTITY:1 CAPSULE(S);?
     Route: 048
     Dates: start: 20170814, end: 20170818
  9. TURMERIC [Concomitant]
     Active Substance: HERBALS\TURMERIC

REACTIONS (13)
  - Musculoskeletal stiffness [None]
  - Paraesthesia [None]
  - Pain in extremity [None]
  - Impaired work ability [None]
  - Headache [None]
  - Myalgia [None]
  - Joint stiffness [None]
  - Tendonitis [None]
  - Back pain [None]
  - Asthenia [None]
  - Neuralgia [None]
  - Movement disorder [None]
  - Dyspnoea [None]

NARRATIVE: CASE EVENT DATE: 20170814
